FAERS Safety Report 9936979 (Version 1)
Quarter: 2014Q1

REPORT INFORMATION
  Report Type: Spontaneous
  Country: US (occurrence: None)
  Receive Date: 20140115
  Receipt Date: 20140115
  Transmission Date: 20141002
  Serious: No
  Sender: FDA-Public Use
  Company Number: 2013US002861

PATIENT
  Age: 62 Year
  Sex: Male

DRUGS (1)
  1. ICLUSIG [Suspect]
     Indication: PRODUCT USED FOR UNKNOWN INDICATION

REACTIONS (4)
  - Abdominal distension [None]
  - Weight increased [None]
  - Diarrhoea [None]
  - Fatigue [None]
